FAERS Safety Report 9667076 (Version 1)
Quarter: 2013Q4

REPORT INFORMATION
  Report Type: Spontaneous
  Country: US (occurrence: US)
  Receive Date: 20131104
  Receipt Date: 20131104
  Transmission Date: 20140711
  Serious: No
  Sender: FDA-Public Use
  Company Number: US-BIOGENIDEC-2013BI089714

PATIENT
  Age: 64 Year
  Sex: Female

DRUGS (5)
  1. TECFIDERA [Suspect]
     Indication: MULTIPLE SCLEROSIS
     Route: 048
     Dates: start: 20130603
  2. PROCTOZONE- HC [Concomitant]
  3. NAFTIN [Concomitant]
  4. CLOTRIMAZOLE [Concomitant]
  5. MUCINEX [Concomitant]

REACTIONS (1)
  - Disease progression [Unknown]
